FAERS Safety Report 18980881 (Version 1)
Quarter: 2021Q1

REPORT INFORMATION
  Report Type: Spontaneous
  Country: FR (occurrence: FR)
  Receive Date: 20210308
  Receipt Date: 20210308
  Transmission Date: 20210420
  Serious: Yes (Other)
  Sender: FDA-Public Use
  Company Number: FR-ORGANON-O2103FRA000373

PATIENT
  Age: 75 Year
  Sex: Male

DRUGS (2)
  1. DUOPLAVIN [Suspect]
     Active Substance: ASPIRIN\CLOPIDOGREL
     Dosage: UNK
  2. EZETIMIBE. [Suspect]
     Active Substance: EZETIMIBE

REACTIONS (6)
  - Sensation of foreign body [Unknown]
  - Haemorrhage [Unknown]
  - Malaise [Unknown]
  - Productive cough [Unknown]
  - Mental fatigue [Unknown]
  - Fatigue [Unknown]
